FAERS Safety Report 9620906 (Version 2)
Quarter: 2013Q4

REPORT INFORMATION
  Report Type: Report from Study
  Country: US (occurrence: US)
  Receive Date: 20131015
  Receipt Date: 20131022
  Transmission Date: 20140711
  Serious: Yes (Hospitalization)
  Sender: FDA-Public Use
  Company Number: US-JNJFOC-20131004397

PATIENT
  Age: 18 Year
  Sex: Male
  Weight: 94.9 kg

DRUGS (12)
  1. REMICADE [Suspect]
     Indication: COLITIS
     Route: 042
     Dates: start: 20121116, end: 20121231
  2. HUMIRA [Concomitant]
     Route: 065
     Dates: start: 20130812
  3. PREDNISOLONE [Concomitant]
     Route: 065
  4. METHOTREXATE [Concomitant]
     Route: 065
  5. CALCIUM CARBONATE [Concomitant]
     Route: 065
  6. NEXIUM [Concomitant]
     Route: 065
  7. FERROUS SULFATE [Concomitant]
     Route: 065
  8. FOLIC ACID [Concomitant]
     Route: 065
  9. MULTIVITAMINS [Concomitant]
     Route: 065
  10. HYOSCYAMINE [Concomitant]
     Route: 065
  11. ZOFRAN [Concomitant]
     Route: 065
  12. TRAMADOL [Concomitant]
     Route: 065

REACTIONS (1)
  - Colitis [Recovered/Resolved with Sequelae]
